FAERS Safety Report 4305809-0 (Version None)
Quarter: 2004Q1

REPORT INFORMATION
  Report Type: 
  Country: None (occurrence: None)
  Receive Date: 20040226
  Receipt Date: 20040226
  Transmission Date: 20041129
  Serious: Yes (Hospitalization)
  Sender: FDA-Public Use
  Company Number: None

PATIENT
  Age: 55 Year
  Sex: Female
  Weight: 96.1626 kg

DRUGS (1)
  1. GAMMAGARD [Suspect]
     Indication: POLYMYOSITIS
     Dosage: 100 GM IV QD X 2 QM
     Route: 042
     Dates: start: 20040110

REACTIONS (2)
  - HEADACHE [None]
  - NAUSEA [None]
